FAERS Safety Report 6092721-2 (Version None)
Quarter: 2009Q1

REPORT INFORMATION
  Report Type: 
  Country: None (occurrence: None)
  Receive Date: 20090225
  Receipt Date: 20090224
  Transmission Date: 20090719
  Serious: Yes (Hospitalization)
  Sender: FDA-Public Use
  Company Number: FR-WYE-G03183109

PATIENT
  Sex: Male
  Weight: 27 kg

DRUGS (2)
  1. ADVIL [Suspect]
     Route: 048
     Dates: start: 20090128, end: 20090130
  2. DOLIPRANE [Suspect]
     Route: 048
     Dates: start: 20090128, end: 20090130

REACTIONS (4)
  - CELLULITIS [None]
  - CONDITION AGGRAVATED [None]
  - INFECTION [None]
  - TOOTH ABSCESS [None]
